FAERS Safety Report 10085235 (Version 1)
Quarter: 2014Q2

REPORT INFORMATION
  Report Type: Spontaneous
  Country: ES (occurrence: ES)
  Receive Date: 20140417
  Receipt Date: 20140417
  Transmission Date: 20141212
  Serious: Yes (Hospitalization)
  Sender: FDA-Public Use
  Company Number: ES-TAKEDA-2014TUS002902

PATIENT
  Age: 58 Year
  Sex: Male

DRUGS (5)
  1. ADENURIC [Suspect]
     Indication: GOUT
     Dosage: 80 MG, QD
     Route: 048
     Dates: start: 201401, end: 20140222
  2. KINERET [Suspect]
     Indication: GOUT
     Dosage: 14.2857 MG, 100 MG,1 IN 1 WK
     Route: 058
     Dates: start: 201401, end: 20140222
  3. TACROLIMUS [Suspect]
     Indication: PROPHYLAXIS AGAINST TRANSPLANT REJECTION
     Dosage: UNK
     Dates: start: 20140223, end: 20140225
  4. SIMULECT [Concomitant]
     Indication: PROPHYLAXIS AGAINST TRANSPLANT REJECTION
     Dosage: UNK
     Route: 042
  5. IMMUNOGLOBULIN G HUMAN [Concomitant]
     Indication: ABO INCOMPATIBILITY
     Dosage: UNK
     Route: 042
     Dates: start: 20140212

REACTIONS (3)
  - Thrombotic microangiopathy [Recovered/Resolved]
  - Thrombocytopenia [Recovered/Resolved]
  - Anaemia [Recovering/Resolving]
